FAERS Safety Report 25677790 (Version 1)
Quarter: 2025Q3

REPORT INFORMATION
  Report Type: Spontaneous
  Country: KR (occurrence: KR)
  Receive Date: 20250813
  Receipt Date: 20250813
  Transmission Date: 20251021
  Serious: Yes (Hospitalization)
  Sender: EISAI
  Company Number: KR-LEQ-SPO-25119

PATIENT
  Age: 85 Year
  Sex: Male

DRUGS (2)
  1. LEQEMBI [Suspect]
     Active Substance: LECANEMAB-IRMB
     Indication: Dementia Alzheimer^s type
  2. LEQEMBI [Suspect]
     Active Substance: LECANEMAB-IRMB

REACTIONS (11)
  - Asthenia [Unknown]
  - Gait disturbance [Unknown]
  - Oedema peripheral [Unknown]
  - Disorientation [Unknown]
  - Erythema [Unknown]
  - Proteinuria [Unknown]
  - Red blood cell sedimentation rate increased [Unknown]
  - C-reactive protein increased [Unknown]
  - Pyrexia [Unknown]
  - Neutrophilia [Unknown]
  - Blood pressure increased [Recovered/Resolved]

NARRATIVE: CASE EVENT DATE: 20250512
